FAERS Safety Report 6741404 (Version 10)
Quarter: 2013Q1

REPORT INFORMATION
  Report Type: Spontaneous
  Country: US (occurrence: US)
  Receive Date: 20080828
  Receipt Date: 20130206
  Transmission Date: 20140127
  Serious: Yes (Other)
  Sender: FDA-Public Use
  Company Number: PHEH2008US07466

PATIENT
  Sex: Female

DRUGS (19)
  1. ZOMETA [Suspect]
     Dosage: 1 MG, UNK
     Dates: end: 200710
  2. THALIDOMIDE [Concomitant]
     Dosage: 100 MG
  3. DEXAMETHASONE [Concomitant]
     Dosage: 4 MG
  4. VELCADE [Concomitant]
  5. ANZEMET [Concomitant]
  6. ZOVIRAX [Concomitant]
  7. SULFAMETHOXAZOLE [Concomitant]
  8. NYSTATIN [Concomitant]
  9. BACTRIM [Concomitant]
  10. COLACE [Concomitant]
  11. ZOFRAN [Concomitant]
  12. TORECAN [Concomitant]
  13. TYLENOL [Concomitant]
  14. CLINDAMYCIN [Concomitant]
     Dosage: 300 MG
  15. CEPHALEXIN [Concomitant]
     Dosage: 500 MG
  16. LYRICA [Concomitant]
     Dosage: 50 MG
  17. ACULAR ^ALLERGAN^ [Concomitant]
  18. FLUTAMIDE [Concomitant]
  19. AUGMENTIN                               /SCH/ [Concomitant]
     Dates: start: 20080513

REACTIONS (16)
  - Spinal compression fracture [Unknown]
  - Bone lesion [Unknown]
  - Osteopenia [Unknown]
  - Neuropathy peripheral [Recovering/Resolving]
  - Osteonecrosis of jaw [Unknown]
  - Bone disorder [Unknown]
  - Dental caries [Unknown]
  - Swelling [Unknown]
  - General physical health deterioration [Unknown]
  - Pain [Unknown]
  - Anxiety [Unknown]
  - Lymphadenopathy [Unknown]
  - Pharyngitis [Unknown]
  - Musculoskeletal discomfort [Unknown]
  - Vomiting [Unknown]
  - Pulmonary mass [Unknown]
